FAERS Safety Report 11517588 (Version 3)
Quarter: 2015Q4

REPORT INFORMATION
  Report Type: Spontaneous
  Country: US (occurrence: US)
  Receive Date: 20150917
  Receipt Date: 20151103
  Transmission Date: 20160304
  Serious: No
  Sender: FDA-Public Use
  Company Number: US-ACTELION PHARMACEUTICALS US, INC.-A-US2015-118059

PATIENT
  Age: 69 Year
  Sex: Male

DRUGS (5)
  1. REMODULIN [Concomitant]
     Active Substance: TREPROSTINIL
  2. ADCIRCA [Concomitant]
     Active Substance: TADALAFIL
  3. COUMADIN [Concomitant]
     Active Substance: WARFARIN SODIUM
  4. TRACLEER [Suspect]
     Active Substance: BOSENTAN
     Indication: PULMONARY ARTERIAL HYPERTENSION
     Dosage: UNK
     Route: 048
  5. ESBRIET [Concomitant]
     Active Substance: PIRFENIDONE

REACTIONS (14)
  - Headache [Unknown]
  - Solar dermatitis [Unknown]
  - Diverticulitis [Recovered/Resolved]
  - Gastrointestinal infection [Recovered/Resolved]
  - Anxiety [Recovered/Resolved]
  - Musculoskeletal injury [Unknown]
  - Asthenia [Unknown]
  - Mobility decreased [Unknown]
  - Blood pressure decreased [Unknown]
  - Musculoskeletal pain [Unknown]
  - Device alarm issue [Unknown]
  - Diarrhoea [Recovered/Resolved]
  - Oxygen saturation decreased [Unknown]
  - Flushing [Unknown]

NARRATIVE: CASE EVENT DATE: 201509
